FAERS Safety Report 12522368 (Version 1)
Quarter: 2016Q3

REPORT INFORMATION
  Report Type: Report from Study
  Country: GB (occurrence: GB)
  Receive Date: 20160701
  Receipt Date: 20160701
  Transmission Date: 20161109
  Serious: Yes (Hospitalization)
  Sender: FDA-Public Use
  Company Number: GB-ABBVIE-16K-167-1661715-00

PATIENT
  Sex: Female

DRUGS (1)
  1. HUMIRA [Suspect]
     Active Substance: ADALIMUMAB
     Indication: CROHN^S DISEASE
     Route: 058

REACTIONS (7)
  - Rash [Unknown]
  - Dermatitis [Unknown]
  - Adverse drug reaction [Unknown]
  - Feeling hot [Unknown]
  - Chest pain [Unknown]
  - Swelling face [Unknown]
  - Erythema [Unknown]
